FAERS Safety Report 13463367 (Version 9)
Quarter: 2018Q4

REPORT INFORMATION
  Report Type: Report from Study
  Country: GB (occurrence: GB)
  Receive Date: 20170420
  Receipt Date: 20181218
  Transmission Date: 20190204
  Serious: Yes (Other)
  Sender: FDA-Public Use
  Company Number: GB-BRISTOL-MYERS SQUIBB COMPANY-BMS-2017-004954

PATIENT
  Sex: Female

DRUGS (1)
  1. ABATACEPT [Suspect]
     Active Substance: ABATACEPT
     Indication: RHEUMATOID ARTHRITIS
     Dosage: 125 MG, QWK
     Route: 058
     Dates: start: 20160818

REACTIONS (6)
  - Arthralgia [Unknown]
  - Lower respiratory tract infection [Unknown]
  - Ear disorder [Unknown]
  - Tooth disorder [Unknown]
  - Animal bite [Unknown]
  - Malaise [Unknown]
